FAERS Safety Report 14076390 (Version 6)
Quarter: 2018Q3

REPORT INFORMATION
  Report Type: Report from Study
  Country: CO (occurrence: CO)
  Receive Date: 20171011
  Receipt Date: 20180815
  Transmission Date: 20181010
  Serious: Yes (Hospitalization)
  Sender: FDA-Public Use
  Company Number: CO-TAKEDA-2017TUS021010

PATIENT
  Age: 28 Year
  Sex: Female
  Weight: 56 kg

DRUGS (3)
  1. VEDOLIZUMAB [Suspect]
     Active Substance: VEDOLIZUMAB
     Indication: COLITIS ULCERATIVE
     Dosage: 300 MG, MONTHLY
     Route: 042
     Dates: start: 20170523
  2. VEDOLIZUMAB [Suspect]
     Active Substance: VEDOLIZUMAB
     Dosage: 300 MG, UNK
     Route: 042
     Dates: end: 20180423
  3. ESOMEPRAZOL                        /01479301/ [Concomitant]
     Active Substance: ESOMEPRAZOLE
     Dosage: UNK
     Route: 042
     Dates: start: 20170902, end: 20170904

REACTIONS (8)
  - Blood thyroid stimulating hormone increased [Unknown]
  - Off label use [Unknown]
  - Faecal calprotectin increased [Unknown]
  - Rectal haemorrhage [Not Recovered/Not Resolved]
  - Blood alkaline phosphatase increased [Unknown]
  - Abdominal pain [Not Recovered/Not Resolved]
  - Hepatotoxicity [Unknown]
  - Hepatic enzyme increased [Unknown]

NARRATIVE: CASE EVENT DATE: 201805
